FAERS Safety Report 18915306 (Version 1)
Quarter: 2021Q1

REPORT INFORMATION
  Report Type: Report from Study
  Country: US (occurrence: US)
  Receive Date: 20210219
  Receipt Date: 20210219
  Transmission Date: 20210420
  Serious: Yes (Hospitalization)
  Sender: FDA-Public Use
  Company Number: US-CELGENEUS-USA-20200309717

PATIENT
  Age: 70 Year
  Sex: Male
  Weight: 57.9 kg

DRUGS (57)
  1. JCAR017 [Suspect]
     Active Substance: LISOCABTAGENE MARALEUCEL
     Indication: B-CELL LYMPHOMA
     Dosage: CD8 + 3.2 ML/CD4 + 3.3 ML
     Route: 041
     Dates: start: 20200303, end: 20200303
  2. FENTANYL. [Concomitant]
     Active Substance: FENTANYL
     Indication: PRODUCT USED FOR UNKNOWN INDICATION
     Route: 041
     Dates: start: 20200302, end: 20200302
  3. LORATADINE. [Concomitant]
     Active Substance: LORATADINE
     Route: 048
     Dates: start: 20200321, end: 20200321
  4. ALLOPURINOL. [Concomitant]
     Active Substance: ALLOPURINOL
     Indication: PRODUCT USED FOR UNKNOWN INDICATION
     Dosage: 300 MILLIGRAM
     Route: 048
     Dates: start: 20200309, end: 20200310
  5. ACETAMINOPHEN. [Concomitant]
     Active Substance: ACETAMINOPHEN
     Route: 048
     Dates: start: 20200329, end: 20200329
  6. FENTANYL. [Concomitant]
     Active Substance: FENTANYL
     Route: 041
     Dates: start: 20200323, end: 20200323
  7. LORATADINE. [Concomitant]
     Active Substance: LORATADINE
     Dosage: 10 MILLIGRAM
     Route: 048
     Dates: start: 20200331
  8. FILGRASTIM [Concomitant]
     Active Substance: FILGRASTIM
     Dosage: 300 MICROGRAM
     Route: 058
     Dates: start: 20200312, end: 20200318
  9. FILGRASTIM [Concomitant]
     Active Substance: FILGRASTIM
     Dosage: 300 MICROGRAM
     Route: 058
     Dates: start: 20200329, end: 20200329
  10. LEVOFLOXACIN. [Concomitant]
     Active Substance: LEVOFLOXACIN
     Dosage: 500 MILLIGRAM
     Route: 041
     Dates: start: 20200331
  11. LORATADINE. [Concomitant]
     Active Substance: LORATADINE
     Route: 048
     Dates: start: 20200325, end: 20200325
  12. NACL 0.9% [Concomitant]
     Active Substance: SODIUM CHLORIDE
     Dosage: 500 MILLILITER
     Route: 041
     Dates: start: 20200310, end: 20200311
  13. SULFAMETHOXAZOLE W/TRIMETHOPRIM [Concomitant]
     Active Substance: SULFAMETHOXAZOLE\TRIMETHOPRIM
     Dosage: 80 MILLIGRAM
     Route: 048
     Dates: start: 20200310
  14. TRAMADOL. [Concomitant]
     Active Substance: TRAMADOL
     Indication: PRODUCT USED FOR UNKNOWN INDICATION
     Route: 048
     Dates: start: 20200316, end: 20200316
  15. TRAMADOL. [Concomitant]
     Active Substance: TRAMADOL
     Route: 048
     Dates: start: 20200320, end: 20200322
  16. MELATONIN [Concomitant]
     Active Substance: MELATONIN
     Indication: PRODUCT USED FOR UNKNOWN INDICATION
     Dosage: 3 MILLIGRAM
     Route: 048
     Dates: start: 20200309
  17. ACETAMINOPHEN. [Concomitant]
     Active Substance: ACETAMINOPHEN
     Indication: PRODUCT USED FOR UNKNOWN INDICATION
     Route: 048
     Dates: start: 20200309, end: 20200309
  18. HEPARIN LOCK FLUSH [Concomitant]
     Active Substance: HEPARIN SODIUM
     Indication: PRODUCT USED FOR UNKNOWN INDICATION
     Dosage: 500 UNITS
     Route: 041
     Dates: start: 20200323, end: 20200323
  19. HEPARIN LOCK FLUSH [Concomitant]
     Active Substance: HEPARIN SODIUM
     Dosage: 500 UNITS
     Route: 041
     Dates: start: 20200327, end: 20200327
  20. LORAZEPAM. [Concomitant]
     Active Substance: LORAZEPAM
     Route: 041
     Dates: start: 20200319, end: 20200320
  21. MAGNESIUM SULFATE. [Concomitant]
     Active Substance: MAGNESIUM SULFATE
     Route: 041
     Dates: start: 20200323, end: 20200323
  22. NACL 0.9% [Concomitant]
     Active Substance: SODIUM CHLORIDE
     Indication: PRODUCT USED FOR UNKNOWN INDICATION
     Dosage: 500 ML/HR
     Route: 041
     Dates: start: 20200304, end: 20200306
  23. TRAMADOL. [Concomitant]
     Active Substance: TRAMADOL
     Route: 048
     Dates: start: 20200318, end: 20200318
  24. FOSAPREPITANT [Concomitant]
     Active Substance: FOSAPREPITANT
     Indication: PRODUCT USED FOR UNKNOWN INDICATION
     Route: 041
     Dates: start: 20200304, end: 20200304
  25. ONDANSETRON [Concomitant]
     Active Substance: ONDANSETRON
     Indication: PRODUCT USED FOR UNKNOWN INDICATION
     Dosage: 16 MILLIGRAMS
     Route: 041
     Dates: start: 20200304, end: 20200306
  26. DIPHENHYDRAMINE. [Concomitant]
     Active Substance: DIPHENHYDRAMINE
     Indication: PRODUCT USED FOR UNKNOWN INDICATION
     Route: 041
     Dates: start: 20200310, end: 20200310
  27. FILGRASTIM [Concomitant]
     Active Substance: FILGRASTIM
     Dosage: 300 MICROGRAM
     Route: 058
     Dates: start: 20200327, end: 20200327
  28. LORATADINE. [Concomitant]
     Active Substance: LORATADINE
     Indication: PRODUCT USED FOR UNKNOWN INDICATION
     Route: 048
     Dates: start: 20200310, end: 20200310
  29. MAGNESIUM SULFATE. [Concomitant]
     Active Substance: MAGNESIUM SULFATE
     Indication: PRODUCT USED FOR UNKNOWN INDICATION
     Route: 041
     Dates: start: 20200311, end: 20200311
  30. POLYETHYLENE GLYCOL [Concomitant]
     Active Substance: POLYETHYLENE GLYCOLS
     Dosage: 17 GRAM
     Route: 048
     Dates: start: 20200402, end: 20200402
  31. SULFAMETHOXAZOLE W/TRIMETHOPRIM [Concomitant]
     Active Substance: SULFAMETHOXAZOLE\TRIMETHOPRIM
     Indication: PRODUCT USED FOR UNKNOWN INDICATION
     Dosage: 80 MILLIGRAMS
     Route: 048
     Dates: start: 20200309, end: 20200309
  32. GADOBUTROL. [Concomitant]
     Active Substance: GADOBUTROL
     Indication: PRODUCT USED FOR UNKNOWN INDICATION
     Route: 041
     Dates: start: 20200303, end: 20200303
  33. MIDAZOLAM. [Concomitant]
     Active Substance: MIDAZOLAM
     Indication: PRODUCT USED FOR UNKNOWN INDICATION
     Route: 041
     Dates: start: 20200302, end: 20200302
  34. CYCLOPHOSPHAMIDE. [Suspect]
     Active Substance: CYCLOPHOSPHAMIDE
     Indication: B-CELL LYMPHOMA
     Dosage: 500 MILLIGRAM
     Route: 041
     Dates: start: 20200303, end: 20200306
  35. ACETAMINOPHEN. [Concomitant]
     Active Substance: ACETAMINOPHEN
     Route: 048
     Dates: start: 20200330
  36. ACYCLOVIR. [Concomitant]
     Active Substance: ACYCLOVIR
     Indication: PRODUCT USED FOR UNKNOWN INDICATION
     Dosage: 800 MILLIGRAM
     Route: 048
     Dates: start: 20200310
  37. DIPHENHYDRAMINE. [Concomitant]
     Active Substance: DIPHENHYDRAMINE
     Route: 048
     Dates: start: 20200329, end: 20200329
  38. HYDROCORTISONE 1% [Concomitant]
     Active Substance: HYDROCORTISONE
     Indication: PRODUCT USED FOR UNKNOWN INDICATION
     Route: 061
     Dates: start: 20200321, end: 20200322
  39. LEVETIRACETAM. [Concomitant]
     Active Substance: LEVETIRACETAM
     Dosage: 1000 MILLIGRAM
     Route: 048
     Dates: start: 20200309
  40. LEVOFLOXACIN. [Concomitant]
     Active Substance: LEVOFLOXACIN
     Indication: PRODUCT USED FOR UNKNOWN INDICATION
     Dosage: 500 MILLIGRAM
     Route: 048
     Dates: start: 20200310, end: 20200316
  41. LIDOCAINE. [Concomitant]
     Active Substance: LIDOCAINE
     Indication: PRODUCT USED FOR UNKNOWN INDICATION
     Route: 065
     Dates: start: 20200302, end: 20200302
  42. LORAZEPAM. [Concomitant]
     Active Substance: LORAZEPAM
     Route: 041
     Dates: start: 20200313, end: 20200314
  43. NACL 0.9% [Concomitant]
     Active Substance: SODIUM CHLORIDE
     Dosage: 20 ML/HR
     Route: 041
     Dates: start: 20200314, end: 20200314
  44. NACL 0.9% [Concomitant]
     Active Substance: SODIUM CHLORIDE
     Dosage: 20 ML/HR
     Route: 041
     Dates: start: 20200323, end: 20200323
  45. ACYCLOVIR. [Concomitant]
     Active Substance: ACYCLOVIR
     Dosage: 1600 MILLIGRAM
     Route: 048
     Dates: start: 20200330
  46. LEVETIRACETAM. [Concomitant]
     Active Substance: LEVETIRACETAM
     Indication: PRODUCT USED FOR UNKNOWN INDICATION
     Dosage: 1000 MILLIGRAM
     Route: 048
     Dates: start: 20200309, end: 20200309
  47. LORATADINE. [Concomitant]
     Active Substance: LORATADINE
     Dosage: 10 MILLIGRAM
     Route: 048
     Dates: start: 20200315, end: 20200316
  48. LORAZEPAM. [Concomitant]
     Active Substance: LORAZEPAM
     Indication: PRODUCT USED FOR UNKNOWN INDICATION
     Route: 041
     Dates: start: 20200310, end: 20200310
  49. MAGNESIUM SULFATE. [Concomitant]
     Active Substance: MAGNESIUM SULFATE
     Dosage: 1 GRAM
     Route: 041
     Dates: start: 20200313, end: 20200321
  50. NACL 0.9% [Concomitant]
     Active Substance: SODIUM CHLORIDE
     Dosage: 500 MILLILITER
     Route: 041
     Dates: start: 20200313, end: 20200313
  51. POLYETHYLENE GLYCOL [Concomitant]
     Active Substance: POLYETHYLENE GLYCOLS
     Indication: PRODUCT USED FOR UNKNOWN INDICATION
     Dosage: 17 GRAM
     Route: 048
     Dates: start: 20200310, end: 20200312
  52. FLUDEOXYGLUCOSE F?18. [Concomitant]
     Active Substance: FLUDEOXYGLUCOSE F-18
     Indication: PRODUCT USED FOR UNKNOWN INDICATION
     Route: 041
     Dates: start: 20200302, end: 20200302
  53. FLUDARABINE [Suspect]
     Active Substance: FLUDARABINE PHOSPHATE
     Indication: B-CELL LYMPHOMA
     Dosage: 50 MILLIGRAM
     Route: 041
     Dates: start: 20200303, end: 20200306
  54. ACYCLOVIR. [Concomitant]
     Active Substance: ACYCLOVIR
     Dosage: 800 MILLIGRAM
     Route: 048
     Dates: start: 20200309, end: 20200310
  55. FILGRASTIM [Concomitant]
     Active Substance: FILGRASTIM
     Indication: PRODUCT USED FOR UNKNOWN INDICATION
     Dosage: 300 MICROGRAM
     Route: 058
     Dates: start: 20200310, end: 20200310
  56. NACL 0.9% [Concomitant]
     Active Substance: SODIUM CHLORIDE
     Dosage: 250 MILLILITER
     Route: 041
     Dates: start: 20200315, end: 20200315
  57. NACL 0.9% [Concomitant]
     Active Substance: SODIUM CHLORIDE
     Dosage: 10?250 ML/HR
     Route: 041
     Dates: start: 20200327, end: 20200402

REACTIONS (5)
  - Anaemia [Recovered/Resolved]
  - Thrombocytopenia [Recovered/Resolved]
  - Cytokine release syndrome [Recovered/Resolved]
  - White blood cell count decreased [Not Recovered/Not Resolved]
  - Neutropenia [Recovered/Resolved]

NARRATIVE: CASE EVENT DATE: 20200326
